FAERS Safety Report 6182105-0 (Version None)
Quarter: 2009Q2

REPORT INFORMATION
  Report Type: 
  Country: None (occurrence: None)
  Receive Date: 20090507
  Receipt Date: 20090428
  Transmission Date: 20091009
  Serious: Yes (Hospitalization)
  Sender: FDA-Public Use
  Company Number: BR-ELI_LILLY_AND_COMPANY-BR200904006805

PATIENT
  Age: 76 Year
  Sex: Female
  Weight: 48 kg

DRUGS (4)
  1. FORTEO [Suspect]
     Indication: OSTEOPOROSIS
     Dosage: UNK, UNKNOWN
     Route: 065
  2. LUFTAL [Concomitant]
     Dosage: UNK, UNKNOWN
     Route: 065
  3. MOTILIUM [Concomitant]
     Dosage: UNK, 2/D
     Route: 065
  4. DIMETICONE [Concomitant]
     Dosage: 40 MG, DAILY (1/D)
     Route: 065

REACTIONS (1)
  - BACTERIAL DIARRHOEA [None]
